FAERS Safety Report 16372050 (Version 1)
Quarter: 2019Q2

REPORT INFORMATION
  Report Type: Spontaneous
  Country: US (occurrence: US)
  Receive Date: 20190424
  Receipt Date: 20190424
  Transmission Date: 20190711
  Serious: No
  Sender: FDA-Public Use
  Company Number: None

PATIENT
  Age: 74 Year
  Sex: Female

DRUGS (1)
  1. METHOTREXATE 50MG/2ML MDV, [Suspect]
     Active Substance: METHOTREXATE
     Indication: CONNECTIVE TISSUE DISORDER
     Route: 058
     Dates: start: 201902

REACTIONS (3)
  - Alopecia [None]
  - Skin discolouration [None]
  - Yellow skin [None]
